FAERS Safety Report 10270581 (Version 1)
Quarter: 2014Q1

REPORT INFORMATION
  Report Type: Spontaneous
  Country: US (occurrence: None)
  Receive Date: 20140306
  Receipt Date: 20140306
  Transmission Date: 20141002
  Serious: Yes (Other)
  Sender: FDA-Public Use
  Company Number: 163-21880-13072430

PATIENT
  Age: 77 Year
  Sex: Female
  Weight: 50.8 kg

DRUGS (5)
  1. REVLIMID (LENALIDOMIDE) (10 MILLIGRAM, CAPSULES) [Suspect]
     Indication: MYELODYSPLASTIC SYNDROME
     Route: 048
     Dates: start: 20080826
  2. SYNTHROID (LEVOTHYROXINE SODIUM ) (UNKNOWN) [Concomitant]
  3. TENORMIN (ATENOLOL) (TABLETS) [Concomitant]
  4. POTASSIUM BICARBONATE (POTASSIUM BICARBONATE) (UNKNOWN) [Concomitant]
  5. XALATAN (LATANOPROST) (UNKNOWN) [Concomitant]

REACTIONS (1)
  - Cataract [None]
